FAERS Safety Report 21936735 (Version 1)
Quarter: 2023Q1

REPORT INFORMATION
  Report Type: Spontaneous
  Country: US (occurrence: US)
  Receive Date: 20230201
  Receipt Date: 20230201
  Transmission Date: 20230417
  Serious: No
  Sender: FDA-Public Use
  Company Number: US-PFIZER INC-202300045828

PATIENT
  Sex: Male

DRUGS (3)
  1. PAXLOVID [Suspect]
     Active Substance: NIRMATRELVIR\RITONAVIR
     Indication: COVID-19 treatment
     Dosage: UNK
     Dates: start: 202301
  2. TAMSULOSIN HYDROCHLORIDE [Concomitant]
     Active Substance: TAMSULOSIN HYDROCHLORIDE
  3. DUTASTERIDE [Concomitant]
     Active Substance: DUTASTERIDE

REACTIONS (3)
  - Pollakiuria [Unknown]
  - Insomnia [Unknown]
  - Labelled drug-drug interaction medication error [Unknown]

NARRATIVE: CASE EVENT DATE: 20230101
